FAERS Safety Report 8452553 (Version 2)
Quarter: 2013Q2

REPORT INFORMATION
  Report Type: Spontaneous
  Country: US (occurrence: None)
  Receive Date: 20120221
  Receipt Date: 20130226
  Transmission Date: 20140414
  Serious: Yes (Hospitalization)
  Sender: FDA-Public Use
  Company Number: PHHY2011US18333

PATIENT
  Age: 34 Year
  Sex: Female

DRUGS (1)
  1. TOBI [Suspect]
     Indication: PNEUMONIA PSEUDOMONAS AERUGINOSA
     Dosage: 300 MG, INHALATION
     Route: 055

REACTIONS (2)
  - DYSPNOEA [None]
  - Drug dispensing error [None]
